FAERS Safety Report 17565460 (Version 5)
Quarter: 2021Q4

REPORT INFORMATION
  Report Type: Spontaneous
  Country: US (occurrence: US)
  Receive Date: 20200320
  Receipt Date: 20211220
  Transmission Date: 20220303
  Serious: No
  Sender: FDA-Public Use
  Company Number: US-PFIZER INC-2020119627

PATIENT
  Age: 59 Year
  Sex: Female

DRUGS (1)
  1. XELJANZ XR [Suspect]
     Active Substance: TOFACITINIB CITRATE
     Indication: Rheumatoid arthritis
     Dosage: 11 MG, ONCE A DAY
     Route: 048
     Dates: start: 201907

REACTIONS (7)
  - Peripheral swelling [Not Recovered/Not Resolved]
  - Pruritus [Recovered/Resolved]
  - Memory impairment [Unknown]
  - Arthralgia [Unknown]
  - Joint swelling [Recovering/Resolving]
  - Drug ineffective [Unknown]
  - Product dose omission in error [Unknown]

NARRATIVE: CASE EVENT DATE: 20190101
